FAERS Safety Report 16004119 (Version 3)
Quarter: 2019Q2

REPORT INFORMATION
  Report Type: Spontaneous
  Country: BG (occurrence: BG)
  Receive Date: 20190226
  Receipt Date: 20190603
  Transmission Date: 20190711
  Serious: Yes (Life-Threatening, Hospitalization, Other)
  Sender: FDA-Public Use
  Company Number: BG-SA-2019SA048746

PATIENT
  Age: 72 Year
  Sex: Male

DRUGS (3)
  1. IRBESARTAN. [Suspect]
     Active Substance: IRBESARTAN
     Indication: HYPERTENSION
     Dosage: 300 MG (1-0-0),
     Route: 065
  2. AMLODIPINE [Suspect]
     Active Substance: AMLODIPINE BESYLATE
     Indication: HYPERTENSION
     Dosage: 5 MG (0-0-1)
     Route: 065
  3. MOXONIDINE [Suspect]
     Active Substance: MOXONIDINE
     Indication: HYPERTENSION
     Dosage: 0.2 MG (0-0-1).
     Route: 065

REACTIONS (8)
  - Sensitive skin [Unknown]
  - Condition aggravated [Recovered/Resolved]
  - Superficial spreading melanoma stage I [Recovered/Resolved]
  - Malignant melanoma [Unknown]
  - Pigmentation disorder [Unknown]
  - Neoplasm skin [Unknown]
  - Discomfort [Unknown]
  - Skin lesion [Recovered/Resolved]
